FAERS Safety Report 7942461-7 (Version None)
Quarter: 2011Q4

REPORT INFORMATION
  Report Type: 
  Country: None (occurrence: None)
  Receive Date: 20111128
  Receipt Date: 20111118
  Transmission Date: 20120403
  Serious: Yes (Death)
  Sender: FDA-Public Use
  Company Number: CA-GLAXOSMITHKLINE-A0932791A

PATIENT
  Sex: Female
  Weight: 72.7 kg

DRUGS (3)
  1. ADVAIR DISKUS 100/50 [Suspect]
     Indication: ASTHMA
     Dosage: 1PUFF TWICE PER DAY
     Route: 055
     Dates: start: 20070101
  2. ALBUTEROL SULFATE AUTOHALER [Suspect]
     Indication: PRODUCT USED FOR UNKNOWN INDICATION
     Route: 065
  3. SYMBICORT [Concomitant]
     Dosage: 3PUFF THREE TIMES PER DAY
     Route: 065

REACTIONS (9)
  - DYSPNOEA [None]
  - CHOKING [None]
  - INCREASED UPPER AIRWAY SECRETION [None]
  - COUGH [None]
  - DRY MOUTH [None]
  - DYSPHONIA [None]
  - DRUG INEFFECTIVE [None]
  - PRODUCTIVE COUGH [None]
  - DEATH [None]
